FAERS Safety Report 8808212 (Version 1)
Quarter: 2012Q4

REPORT INFORMATION
  Report Type: 
  Country: FR (occurrence: FR)
  Receive Date: 20120926
  Receipt Date: 20120926
  Transmission Date: 20130627
  Serious: Yes (Hospitalization, Other)
  Sender: FDA-Public Use
  Company Number: FR-BIOGENIDEC-2012BI040028

PATIENT
  Age: 30 Year
  Sex: Female

DRUGS (1)
  1. TYSABRI [Suspect]
     Indication: MULTIPLE SCLEROSIS
     Route: 042
     Dates: start: 201111, end: 201205

REACTIONS (2)
  - Rebound effect [Not Recovered/Not Resolved]
  - Drug specific antibody present [Unknown]
